FAERS Safety Report 18817338 (Version 1)
Quarter: 2021Q1

REPORT INFORMATION
  Report Type: Report from Study
  Country: US (occurrence: US)
  Receive Date: 20210201
  Receipt Date: 20210201
  Transmission Date: 20210419
  Serious: Yes (Hospitalization)
  Sender: FDA-Public Use
  Company Number: NVSC2021US011057

PATIENT
  Age: 61 Year
  Sex: Male

DRUGS (1)
  1. ENTRESTO [Suspect]
     Active Substance: SACUBITRIL\VALSARTAN
     Indication: PRODUCT USED FOR UNKNOWN INDICATION
     Dosage: UNK UNK, BID
     Route: 048
     Dates: start: 20210111

REACTIONS (9)
  - Dyspnoea [Unknown]
  - Panic attack [Unknown]
  - Myocardial infarction [Unknown]
  - Insomnia [Unknown]
  - Fatigue [Unknown]
  - Heart rate abnormal [Unknown]
  - Fluid overload [Unknown]
  - Decreased activity [Unknown]
  - Cough [Unknown]
